FAERS Safety Report 23203378 (Version 7)
Quarter: 2024Q1

REPORT INFORMATION
  Report Type: Report from Study
  Country: ZA (occurrence: ZA)
  Receive Date: 20231120
  Receipt Date: 20240306
  Transmission Date: 20240409
  Serious: Yes (Hospitalization, Other)
  Sender: FDA-Public Use
  Company Number: ZA-Merck Healthcare KGaA-2023467972

PATIENT
  Age: 27 Year
  Sex: Female

DRUGS (3)
  1. REBIF [Suspect]
     Active Substance: INTERFERON BETA-1A
     Indication: Multiple sclerosis
     Route: 058
     Dates: start: 20230112
  2. LAMOTRIGINE [Concomitant]
     Active Substance: LAMOTRIGINE
     Indication: Multiple sclerosis
     Route: 048
     Dates: start: 20230104
  3. LAMOTRIGINE [Concomitant]
     Active Substance: LAMOTRIGINE
     Dosage: 1 TABLET AT NIGHT
     Route: 048
     Dates: start: 20230117

REACTIONS (7)
  - Amniotic fluid volume decreased [Recovered/Resolved]
  - Pre-eclampsia [Recovered/Resolved]
  - Cystitis [Recovered/Resolved]
  - Pyrexia [Unknown]
  - Emotional distress [Unknown]
  - Live birth [Recovered/Resolved]
  - Maternal exposure during pregnancy [Recovered/Resolved]

NARRATIVE: CASE EVENT DATE: 20230810
